FAERS Safety Report 12124947 (Version 1)
Quarter: 2016Q1

REPORT INFORMATION
  Report Type: Other
  Country: DE (occurrence: DE)
  Receive Date: 20160229
  Receipt Date: 20160229
  Transmission Date: 20160526
  Serious: Yes (Hospitalization, Congenital Anomaly, Other)
  Sender: FDA-Public Use
  Company Number: DE-MACLEODS PHARMACEUTICALS US LTD-MAC2014002444

PATIENT

DRUGS (5)
  1. ESCITALOPRAM [Suspect]
     Active Substance: ESCITALOPRAM OXALATE
     Indication: BORDERLINE PERSONALITY DISORDER
     Dosage: 15 MG, QD (8 - 38.5 GESTATIONAL WEEK)
     Route: 064
  2. FOLSAURE [Concomitant]
     Active Substance: FOLIC ACID
     Indication: PROPHYLAXIS OF NEURAL TUBE DEFECT
     Dosage: UNK
     Route: 064
  3. VENLAFAXINE [Concomitant]
     Active Substance: VENLAFAXINE HYDROCHLORIDE
     Indication: BORDERLINE PERSONALITY DISORDER
     Dosage: 225 MG, QD  (0- 8 GESTATIONAL WEEK)
     Route: 064
  4. CYANOCOBALAMIN. [Concomitant]
     Active Substance: CYANOCOBALAMIN
     Indication: VITAMIN B12 DEFICIENCY
     Dosage: UNK (0-38.5GESTATIONAL WEEK)
     Route: 064
     Dates: start: 20140921, end: 20150619
  5. EUTHYROX [Concomitant]
     Active Substance: LEVOTHYROXINE SODIUM
     Indication: HYPOTHYROIDISM
     Dosage: 100 ?G, QD (0 -38.5 GESTATIONAL WEEK)
     Route: 064
     Dates: start: 20140921, end: 20150619

REACTIONS (8)
  - Dyspnoea [Unknown]
  - Muscle rigidity [Unknown]
  - Coordination abnormal [Not Recovered/Not Resolved]
  - Developmental hip dysplasia [Recovering/Resolving]
  - Hypotonia [Not Recovered/Not Resolved]
  - Seizure [Unknown]
  - Tremor [Unknown]
  - Foetal exposure during pregnancy [None]
